FAERS Safety Report 23945478 (Version 1)
Quarter: 2024Q2

REPORT INFORMATION
  Report Type: Spontaneous
  Country: US (occurrence: None)
  Receive Date: 20240605
  Receipt Date: 20240605
  Transmission Date: 20240716
  Serious: Yes (Death, Hospitalization)
  Sender: FDA-Public Use
  Company Number: None

PATIENT
  Age: 89 Year
  Sex: Male

DRUGS (1)
  1. OFEV [Suspect]
     Active Substance: NINTEDANIB
     Indication: Interstitial lung disease
     Dosage: FREQUENCY : TWICE A DAY;?
     Route: 048
     Dates: start: 20210910, end: 20230320

REACTIONS (7)
  - Respiratory failure [None]
  - Pneumonia pseudomonal [None]
  - Subcutaneous emphysema [None]
  - Pneumomediastinum [None]
  - Hyponatraemia [None]
  - Thrombocytopenia [None]
  - Shock [None]

NARRATIVE: CASE EVENT DATE: 20240330
